FAERS Safety Report 7383526-0 (Version None)
Quarter: 2011Q1

REPORT INFORMATION
  Report Type: 
  Country: None (occurrence: None)
  Receive Date: 20110330
  Receipt Date: 20110317
  Transmission Date: 20110831
  Serious: Yes (Death, Hospitalization)
  Sender: FDA-Public Use
  Company Number: US-CELGENEUS-163-21880-11032145

PATIENT
  Age: 74 Year
  Sex: Female

DRUGS (11)
  1. HYDROMORPHONE HCL [Concomitant]
     Route: 065
  2. M.V.I. [Concomitant]
     Route: 065
  3. LOPERAMIDE [Concomitant]
     Route: 065
  4. DEXAMETHASONE [Concomitant]
     Indication: MULTIPLE MYELOMA
     Route: 065
     Dates: start: 20090801, end: 20091201
  5. WARFARIN [Concomitant]
     Indication: MULTIPLE MYELOMA
     Route: 065
     Dates: start: 20090801, end: 20091201
  6. K-TAB [Concomitant]
     Route: 065
  7. CIPROFLOXACIN [Concomitant]
     Route: 065
  8. FERROUS GLUCONATE [Concomitant]
     Route: 065
  9. REVLIMID [Suspect]
     Indication: MULTIPLE MYELOMA
     Dosage: 25 MILLIGRAM
     Route: 048
     Dates: start: 20090801, end: 20091201
  10. LANSOPRAZOLE [Concomitant]
     Route: 065
  11. HYOSCYAMINE [Concomitant]
     Route: 065

REACTIONS (7)
  - MENTAL STATUS CHANGES [None]
  - CLOSTRIDIUM DIFFICILE COLITIS [None]
  - HYPOKALAEMIA [None]
  - INFECTION [None]
  - SYNCOPE [None]
  - DEHYDRATION [None]
  - ROTATOR CUFF SYNDROME [None]
